FAERS Safety Report 22270828 (Version 1)
Quarter: 2023Q2

REPORT INFORMATION
  Report Type: Spontaneous
  Country: CN (occurrence: CN)
  Receive Date: 20230501
  Receipt Date: 20230501
  Transmission Date: 20230722
  Serious: Yes (Death, Other)
  Sender: FDA-Public Use
  Company Number: CN-SA-2023SA130520

PATIENT
  Age: 81 Year
  Sex: Male

DRUGS (5)
  1. OXALIPLATIN [Suspect]
     Active Substance: OXALIPLATIN
     Indication: Gastric cancer
     Dosage: 100 MG, QCY
     Route: 042
     Dates: start: 20221021
  2. LEUCOVORIN CALCIUM [Suspect]
     Active Substance: LEUCOVORIN CALCIUM
     Indication: Gastric cancer
     Dosage: 500 MG, QCY
     Route: 042
     Dates: start: 20221021
  3. OPDIVO [Suspect]
     Active Substance: NIVOLUMAB
     Indication: Gastric cancer
     Dosage: 140 MG, QCY
     Route: 042
     Dates: start: 20221021
  4. FLUOROURACIL [Suspect]
     Active Substance: FLUOROURACIL
     Indication: Gastric cancer
     Dosage: 500 MG QCY WAS RAPIDLY INSTILLED
     Dates: start: 20221021
  5. FLUOROURACIL [Suspect]
     Active Substance: FLUOROURACIL
     Dosage: 2.5 G WAS SLOWLY PUMPED THROUGH THE MICRO PUMP FOR 46 HOURS
     Dates: start: 20221021

REACTIONS (4)
  - Hepatic failure [Fatal]
  - Jaundice [Unknown]
  - Hepatic lesion [Unknown]
  - Condition aggravated [Unknown]

NARRATIVE: CASE EVENT DATE: 20221104
